FAERS Safety Report 21525195 (Version 1)
Quarter: 2022Q4

REPORT INFORMATION
  Report Type: Spontaneous
  Country: US (occurrence: US)
  Receive Date: 20221030
  Receipt Date: 20221030
  Transmission Date: 20230112
  Serious: No
  Sender: FDA-Public Use
  Company Number: US-SA-SAC20221026001362

PATIENT
  Sex: Male

DRUGS (3)
  1. DUPIXENT [Suspect]
     Active Substance: DUPILUMAB
     Dosage: 300MG FREQUENCY: OTHER
     Route: 058
  2. INFLUENZA VIRUS VACCINE [Concomitant]
     Active Substance: INFLUENZA VIRUS VACCINE
     Indication: Immunisation
     Dates: start: 202210
  3. COVID-19 VACCINE [Concomitant]
     Indication: Immunisation
     Dosage: UNK
     Dates: start: 202210

REACTIONS (3)
  - Fatigue [Unknown]
  - Malaise [Unknown]
  - Dizziness [Unknown]
